FAERS Safety Report 8813379 (Version 2)
Quarter: 2013Q4

REPORT INFORMATION
  Report Type: Spontaneous
  Country: US (occurrence: US)
  Receive Date: 20120927
  Receipt Date: 20131008
  Transmission Date: 20140711
  Serious: No
  Sender: FDA-Public Use
  Company Number: US-AMGEN-USASP2012052070

PATIENT
  Sex: Female

DRUGS (1)
  1. PROLIA [Suspect]
     Indication: OSTEOPOROSIS POSTMENOPAUSAL
     Dosage: 60 MG, Q6MO

REACTIONS (6)
  - Low density lipoprotein increased [Not Recovered/Not Resolved]
  - Hepatic steatosis [Unknown]
  - Pain in jaw [Unknown]
  - Insomnia [Unknown]
  - Hypercholesterolaemia [Recovering/Resolving]
  - Pain in extremity [Unknown]
